FAERS Safety Report 14458382 (Version 1)
Quarter: 2018Q1

REPORT INFORMATION
  Report Type: Other
  Country: US (occurrence: US)
  Receive Date: 20180130
  Receipt Date: 20180130
  Transmission Date: 20180509
  Serious: Yes (Other)
  Sender: FDA-Public Use
  Company Number: US-ACORDA-ACO_134590_2017

PATIENT
  Age: 43 Year
  Sex: Female
  Weight: 109.75 kg

DRUGS (8)
  1. GILENYA [Concomitant]
     Active Substance: FINGOLIMOD HYDROCHLORIDE
     Indication: PRODUCT USED FOR UNKNOWN INDICATION
     Dosage: UNK
     Route: 065
     Dates: start: 201406
  2. DANTROLENE SODIUM. [Concomitant]
     Active Substance: DANTROLENE SODIUM
     Indication: PRODUCT USED FOR UNKNOWN INDICATION
     Dosage: UNK
     Route: 065
  3. ORSYTHIA [Concomitant]
     Active Substance: ETHINYL ESTRADIOL\LEVONORGESTREL
     Indication: PRODUCT USED FOR UNKNOWN INDICATION
     Dosage: 0.1- 20 MG
     Route: 065
  4. AMPYRA [Suspect]
     Active Substance: DALFAMPRIDINE
     Indication: GAIT DISTURBANCE
     Dosage: 10 MG, BID
     Route: 048
     Dates: start: 20150721
  5. AMPYRA [Suspect]
     Active Substance: DALFAMPRIDINE
     Indication: MULTIPLE SCLEROSIS
  6. LYRICA [Concomitant]
     Active Substance: PREGABALIN
     Indication: PRODUCT USED FOR UNKNOWN INDICATION
     Dosage: UNK
     Route: 065
  7. NEXIUM [Concomitant]
     Active Substance: ESOMEPRAZOLE MAGNESIUM
     Indication: PRODUCT USED FOR UNKNOWN INDICATION
     Dosage: UNK
     Route: 065
  8. HYDROCHLOROTHIAZIDE. [Concomitant]
     Active Substance: HYDROCHLOROTHIAZIDE
     Indication: PRODUCT USED FOR UNKNOWN INDICATION
     Dosage: 12.5 MG
     Route: 065

REACTIONS (31)
  - Vaginal discharge [Unknown]
  - Gait disturbance [Unknown]
  - Pain [Unknown]
  - Tremor [Unknown]
  - Loss of control of legs [Unknown]
  - Hernia [Unknown]
  - Musculoskeletal pain [Unknown]
  - Asthenia [Unknown]
  - Cystitis [Not Recovered/Not Resolved]
  - Feeling abnormal [Unknown]
  - Condition aggravated [Unknown]
  - Hypokinesia [Unknown]
  - Mobility decreased [Unknown]
  - Motor dysfunction [Unknown]
  - Bladder dysfunction [Unknown]
  - Intervertebral disc protrusion [Unknown]
  - Neck pain [Unknown]
  - Back pain [Unknown]
  - Fall [Unknown]
  - Anxiety [Unknown]
  - Muscle tightness [Unknown]
  - Incontinence [Unknown]
  - Dysstasia [Unknown]
  - Hypertension [Not Recovered/Not Resolved]
  - Muscle rigidity [Unknown]
  - Muscle spasms [Unknown]
  - Anxiety [Unknown]
  - Depression suicidal [Unknown]
  - Somnolence [Unknown]
  - General physical health deterioration [Unknown]
  - Urinary tract infection [Not Recovered/Not Resolved]

NARRATIVE: CASE EVENT DATE: 20170316
